FAERS Safety Report 12493444 (Version 1)
Quarter: 2016Q2

REPORT INFORMATION
  Report Type: Spontaneous
  Country: US (occurrence: US)
  Receive Date: 20160623
  Receipt Date: 20160623
  Transmission Date: 20160815
  Serious: Yes (Hospitalization, Other)
  Sender: FDA-Public Use
  Company Number: US-PFIZER INC-2016307746

PATIENT
  Age: 56 Year
  Sex: Female
  Weight: 96.16 kg

DRUGS (10)
  1. GABAPENTIN. [Concomitant]
     Active Substance: GABAPENTIN
     Indication: NEUROPATHY PERIPHERAL
     Dosage: 300MG TWO THREE TIMES A DAY
     Dates: start: 2015
  2. XANAX [Concomitant]
     Active Substance: ALPRAZOLAM
     Indication: PANIC ATTACK
  3. B12 SHOT [Concomitant]
     Dosage: THEN ONCE A MONTH
  4. VITAMIN D [Concomitant]
     Active Substance: CHOLECALCIFEROL
     Indication: VITAMIN D DEFICIENCY
     Dosage: 50000 IU, WEEKLY
     Dates: start: 2014
  5. AMPHETAMINE [Concomitant]
     Active Substance: AMPHETAMINE
     Indication: DISTURBANCE IN ATTENTION
     Dosage: 30 MG, 2X/DAY
  6. XANAX [Concomitant]
     Active Substance: ALPRAZOLAM
     Indication: ANXIETY
     Dosage: 1 MG, (1MG THREE OR FOUR TIMES A DAY)
     Dates: start: 2004
  7. FUROSEMIDE. [Concomitant]
     Active Substance: FUROSEMIDE
     Indication: OEDEMA
     Dosage: 20 MG, DAILY
     Dates: start: 2014
  8. LYRICA [Suspect]
     Active Substance: PREGABALIN
     Indication: FIBROMYALGIA
     Dosage: 75 MG, 2X/DAY
     Dates: start: 20151130, end: 201601
  9. B12 SHOT [Concomitant]
     Indication: VITAMIN B12 DECREASED
     Dosage: EVERY DAY FOR EIGHT DAYS
     Dates: start: 2014
  10. POTASSIUM [Concomitant]
     Active Substance: POTASSIUM
     Indication: HYPOKALAEMIA
     Dosage: 20 MEQ, UNK

REACTIONS (5)
  - Abdominal distension [Recovered/Resolved]
  - Weight increased [Recovering/Resolving]
  - Flatulence [Unknown]
  - Swelling [Recovering/Resolving]
  - Intestinal ulcer [Unknown]

NARRATIVE: CASE EVENT DATE: 201512
